FAERS Safety Report 25245715 (Version 1)
Quarter: 2025Q2

REPORT INFORMATION
  Report Type: Spontaneous
  Country: US (occurrence: None)
  Receive Date: 20250427
  Receipt Date: 20250427
  Transmission Date: 20250717
  Serious: Yes (Disabling, Other)
  Sender: FDA-CTU
  Company Number: None

PATIENT
  Age: 75 Year
  Sex: Female
  Weight: 60.3 kg

DRUGS (10)
  1. VANICREAM [Suspect]
     Active Substance: TITANIUM DIOXIDE\ZINC OXIDE
     Indication: Eczema
     Dosage: TWICE A DAY TOPICAL
     Route: 061
     Dates: start: 20240820, end: 20250215
  2. CLOBETASOL PROPIONATE [Suspect]
     Active Substance: CLOBETASOL PROPIONATE
  3. MUPIROCIN [Suspect]
     Active Substance: MUPIROCIN
  4. TRIAMCINOLONE [Suspect]
     Active Substance: TRIAMCINOLONE
  5. KETOCONAZOLE [Suspect]
     Active Substance: KETOCONAZOLE
  6. SYNTHROID [Concomitant]
     Active Substance: LEVOTHYROXINE SODIUM
  7. Centrum silver vitamin [Concomitant]
  8. BIOTIN [Concomitant]
     Active Substance: BIOTIN
  9. FOLIC ACID [Concomitant]
     Active Substance: FOLIC ACID
  10. camomile tea with some ginger and turmeric tea [Concomitant]

REACTIONS (7)
  - Rash [None]
  - Condition aggravated [None]
  - Skin burning sensation [None]
  - Dermatitis contact [None]
  - Product formulation issue [None]
  - Chemical burn [None]
  - Weight decreased [None]

NARRATIVE: CASE EVENT DATE: 20240820
